FAERS Safety Report 24437691 (Version 1)
Quarter: 2024Q4

REPORT INFORMATION
  Report Type: Spontaneous
  Country: US (occurrence: None)
  Receive Date: 20241014
  Receipt Date: 20241014
  Transmission Date: 20250114
  Serious: Yes (Hospitalization)
  Sender: Public
  Company Number: None

PATIENT
  Sex: Female

DRUGS (3)
  1. ARANESP [Suspect]
     Active Substance: DARBEPOETIN ALFA
     Indication: Anaemia
     Dosage: OTHER STRENGTH : 60MCG;?OTHER QUANTITY : 60 MCG ;?FREQUENCY : WEEKLY;?
     Route: 058
     Dates: start: 202405
  2. MYCOPHENOLATE MOFETIL [Concomitant]
  3. TACROLIMUS (BIOCON) [Concomitant]

REACTIONS (1)
  - Sickle cell anaemia with crisis [None]
